FAERS Safety Report 10187955 (Version 1)
Quarter: 2014Q2

REPORT INFORMATION
  Report Type: Spontaneous
  Country: US (occurrence: US)
  Receive Date: 20140522
  Receipt Date: 20140522
  Transmission Date: 20141212
  Serious: No
  Sender: FDA-Public Use
  Company Number: US-SA-2013SA096090

PATIENT
  Sex: 0

DRUGS (3)
  1. LANTUS [Suspect]
     Dosage: DOSE:12 UNIT(S)
     Route: 051
     Dates: start: 20130801
  2. LANTUS [Suspect]
     Dosage: DOSE:24 UNIT(S)
     Route: 051
  3. NOVOLOG [Suspect]
     Route: 065

REACTIONS (5)
  - Dizziness [Unknown]
  - Arthropathy [Unknown]
  - Blood glucose decreased [Unknown]
  - Extra dose administered [Unknown]
  - Blood glucose increased [Unknown]
